FAERS Safety Report 9255748 (Version 4)
Quarter: 2013Q3

REPORT INFORMATION
  Report Type: Report from Study
  Country: US (occurrence: US)
  Receive Date: 20130425
  Receipt Date: 20130802
  Transmission Date: 20140515
  Serious: Yes (Hospitalization, Other)
  Sender: FDA-Public Use
  Company Number: PHEH2013US009228

PATIENT
  Age: 3 Year
  Sex: Female

DRUGS (5)
  1. TOBI [Suspect]
     Dosage: 300 MG, BID
     Dates: start: 20091001
  2. TOBI [Suspect]
     Dosage: UNK UKN, UNK
     Dates: start: 20120801, end: 20120910
  3. TOBRAMYCIN [Suspect]
     Indication: LUNG CYST
     Dosage: 170 MG, QD (170 MG EVERY 24 H)
     Route: 042
     Dates: start: 20121215, end: 20121221
  4. MONTELUKAST [Concomitant]
     Indication: SINUSITIS
     Dosage: 4 MG, UNK
     Route: 048
  5. FLONASE [Concomitant]
     Dosage: 50 UG, UNK

REACTIONS (9)
  - Pneumonia [Unknown]
  - Bacterial infection [Unknown]
  - Cystic fibrosis [Unknown]
  - Dyspnoea [Unknown]
  - Chest discomfort [Unknown]
  - Fatigue [Unknown]
  - Malaise [Unknown]
  - Wheezing [Unknown]
  - Drug administered to patient of inappropriate age [Unknown]
